FAERS Safety Report 14770600 (Version 2)
Quarter: 2018Q2

REPORT INFORMATION
  Report Type: Report from Study
  Country: US (occurrence: US)
  Receive Date: 20180417
  Receipt Date: 20180626
  Transmission Date: 20180711
  Serious: Yes (Other)
  Sender: FDA-Public Use
  Company Number: US-PFIZER INC-2018057031

PATIENT
  Age: 74 Year
  Sex: Female

DRUGS (3)
  1. IBRANCE [Suspect]
     Active Substance: PALBOCICLIB
     Indication: NEOPLASM MALIGNANT
     Dosage: 125 MG, CYCLIC, (DAILY; 3 WEEKS ON/1 WEEK OFF)
     Route: 048
     Dates: start: 20180112
  2. IBRANCE [Suspect]
     Active Substance: PALBOCICLIB
     Indication: BREAST CANCER FEMALE
     Dosage: 125 MG, DAILY
     Route: 048
     Dates: start: 20180112
  3. IBRANCE [Suspect]
     Active Substance: PALBOCICLIB
     Dosage: 100 MG, CYCLIC (DAILY FOR 21 DAYS EVERY 28 DAYS)
     Route: 048
     Dates: start: 20180111

REACTIONS (6)
  - Leukopenia [Unknown]
  - Back pain [Unknown]
  - Tongue discolouration [Not Recovered/Not Resolved]
  - Alopecia [Not Recovered/Not Resolved]
  - Bronchitis [Unknown]
  - Bone marrow failure [Unknown]

NARRATIVE: CASE EVENT DATE: 2018
